FAERS Safety Report 4995805-2 (Version None)
Quarter: 2006Q2

REPORT INFORMATION
  Report Type: 
  Country: None (occurrence: None)
  Receive Date: 20060504
  Receipt Date: 20060425
  Transmission Date: 20061013
  Serious: Yes (Death)
  Sender: FDA-Public Use
  Company Number: L06-GER-01322-04

PATIENT
  Age: 42 Year
  Sex: Female

DRUGS (4)
  1. CARBAMAZEPINE [Suspect]
  2. VALPROATE SODIUM [Suspect]
  3. PRIMIDONE [Suspect]
  4. PHENOBARBITONE [Suspect]

REACTIONS (4)
  - DYSPNOEA [None]
  - HYPOTHERMIA [None]
  - SOMNOLENCE [None]
  - VENTRICULAR FIBRILLATION [None]
